FAERS Safety Report 17604321 (Version 1)
Quarter: 2020Q1

REPORT INFORMATION
  Report Type: Spontaneous
  Country: DK (occurrence: DK)
  Receive Date: 20200331
  Receipt Date: 20200331
  Transmission Date: 20200409
  Serious: Yes (Hospitalization, Other)
  Sender: FDA-Public Use
  Company Number: DK-BIOVITRUM-2020DK1474

PATIENT
  Age: 42 Year
  Sex: Female

DRUGS (14)
  1. ATORVASTATIN [Concomitant]
     Active Substance: ATORVASTATIN
     Indication: HYPERCHOLESTEROLAEMIA
     Dosage: STYRKE: 40 MG
     Route: 048
     Dates: start: 201907
  2. POTASSIUM CHLORIDE. [Concomitant]
     Active Substance: POTASSIUM CHLORIDE
     Indication: MINERAL SUPPLEMENTATION
     Dosage: STYRKE: 750 MG
     Route: 048
  3. KINERET [Suspect]
     Active Substance: ANAKINRA
     Indication: GOUT
     Dosage: STYRKE: 100 MG/0,67 ML, DOSIS: 100 MG X 1 DAGLIGT I 7 DAGE,
     Route: 058
     Dates: start: 201911, end: 201912
  4. FEBUXOSTAT. [Concomitant]
     Active Substance: FEBUXOSTAT
     Indication: BLOOD URIC ACID INCREASED
     Dosage: STYRKE: 80 MG
     Route: 048
     Dates: start: 201401
  5. HYOSCINE BUTYLBROMIDE [Concomitant]
     Active Substance: BUTYLSCOPOLAMINE BROMIDE
     Indication: ABDOMINAL PAIN UPPER
     Dosage: STYRKE: 10 MG
     Route: 048
     Dates: start: 201807
  6. CANNABIDIOL OG DRONABINOL [Concomitant]
     Indication: NEURALGIA
     Dosage: STYRKE: 10+25 MG/ML, DOSIS: DOSERING EFTER SKRIFTLIG ANVISNING
     Route: 048
     Dates: start: 201909
  7. SPIRONOLACTONE. [Concomitant]
     Active Substance: SPIRONOLACTONE
     Indication: DIURETIC THERAPY
     Dosage: STYRKE: 50 MG
     Route: 048
  8. MORPHINE [Concomitant]
     Active Substance: MORPHINE
     Indication: PAIN
     Dosage: STYRKE: 10 MG, DOSIS: 1 TABLET EFTER BEH?V H?JST 3 GANGE DAGLIG
     Route: 048
     Dates: start: 201807
  9. INSULIN ASPART [Concomitant]
     Active Substance: INSULIN ASPART
     Indication: DIABETES MELLITUS
     Dosage: STYRKE: 100 E/ML, DOSIS: 5-6 EH PR M?LTID
     Dates: start: 201910
  10. DIURAL [Concomitant]
     Active Substance: FUROSEMIDE
     Indication: DIURETIC THERAPY
     Dosage: STYRKE: 40 MG
     Route: 048
     Dates: start: 201703
  11. ONDANSETRON [Concomitant]
     Active Substance: ONDANSETRON
     Indication: PROPHYLAXIS OF NAUSEA AND VOMITING
     Dosage: STYRKE: 8 MG. DOSIS: 1 TABLET MORGEN OG MIDDAG EFTER BEHOV
     Route: 048
     Dates: start: 201807
  12. PANTOPRAZOLE [Concomitant]
     Active Substance: PANTOPRAZOLE
     Indication: GASTROOESOPHAGEAL REFLUX DISEASE
     Dosage: STYRKE: 40 MG
     Route: 048
     Dates: start: 201710
  13. INSULIN DEGLUDEC [Concomitant]
     Active Substance: INSULIN DEGLUDEC
     Indication: DIABETES MELLITUS
     Dosage: STYRKE: 100 E/ML.
     Dates: start: 201907
  14. COLCHICINE. [Concomitant]
     Active Substance: COLCHICINE
     Indication: ARTHRITIS
     Dosage: STYRKE: 500 ?G
     Route: 048
     Dates: start: 201807

REACTIONS (8)
  - Swelling face [Recovered/Resolved]
  - Oral pruritus [Recovered/Resolved]
  - Swollen tongue [Recovered/Resolved]
  - Rash pruritic [Recovered/Resolved]
  - Off label use [Recovered/Resolved]
  - Dyspnoea [Recovered/Resolved]
  - Angioedema [Recovered/Resolved]
  - Injection site irritation [Recovered/Resolved]

NARRATIVE: CASE EVENT DATE: 201911
